FAERS Safety Report 5984226-1 (Version None)
Quarter: 2008Q4

REPORT INFORMATION
  Report Type: 
  Country: None (occurrence: None)
  Receive Date: 20081208
  Receipt Date: 20081202
  Transmission Date: 20090506
  Serious: Yes (Death)
  Sender: FDA-Public Use
  Company Number: JP-ASTRAZENECA-2008AP09099

PATIENT
  Age: 24 Year
  Sex: Female

DRUGS (11)
  1. SEROQUEL [Suspect]
     Indication: SCHIZOPHRENIA
     Route: 048
     Dates: start: 20070901, end: 20081119
  2. SEROQUEL [Suspect]
     Route: 048
     Dates: start: 20081120
  3. AKINETON [Concomitant]
     Route: 048
  4. LULLAN [Concomitant]
     Route: 048
  5. LORAZEPAM [Concomitant]
     Route: 048
  6. CONTOMIN [Concomitant]
     Route: 048
  7. HIRNAMIN [Concomitant]
     Route: 048
  8. EVAMYL [Concomitant]
     Route: 048
  9. SILECE [Concomitant]
     Route: 048
  10. DORAL [Concomitant]
     Route: 048
  11. PROMETHAZINE HCL [Concomitant]
     Route: 048

REACTIONS (2)
  - DEATH [None]
  - OVERDOSE [None]
